FAERS Safety Report 17771765 (Version 2)
Quarter: 2020Q4

REPORT INFORMATION
  Report Type: Spontaneous
  Country: US (occurrence: US)
  Receive Date: 20200512
  Receipt Date: 20201211
  Transmission Date: 20210113
  Serious: No
  Sender: FDA-Public Use
  Company Number: US-PFIZER INC-2020183342

PATIENT
  Age: 76 Year
  Sex: Female

DRUGS (1)
  1. EUCRISA [Suspect]
     Active Substance: CRISABOROLE
     Indication: DERMATITIS
     Dosage: APPLY 2X/DAY AS NEEDED
     Route: 061

REACTIONS (4)
  - Tremor [Unknown]
  - Product complaint [Unknown]
  - Application site pain [Unknown]
  - Facial discomfort [Unknown]
